FAERS Safety Report 4775482-6 (Version None)
Quarter: 2005Q3

REPORT INFORMATION
  Report Type: 
  Country: None (occurrence: None)
  Receive Date: 20050921
  Receipt Date: 20050921
  Transmission Date: 20060218
  Serious: Yes (Hospitalization)
  Sender: FDA-Public Use
  Company Number: None

PATIENT
  Age: 4 Year
  Sex: Female
  Weight: 14 kg

DRUGS (3)
  1. ASPARAGINASE MAYNE [Suspect]
     Indication: LEUKAEMIA
     Dosage: 6200 U ONE DOSE PR
     Route: 054
     Dates: start: 20050828, end: 20050828
  2. VINCRISTINE [Concomitant]
  3. BEXAMETHASONE [Concomitant]

REACTIONS (3)
  - HYPOTENSION [None]
  - PRURITUS [None]
  - VOMITING [None]
